FAERS Safety Report 23616903 (Version 2)
Quarter: 2024Q1

REPORT INFORMATION
  Report Type: Report from Study
  Country: US (occurrence: US)
  Receive Date: 20240311
  Receipt Date: 20240321
  Transmission Date: 20240410
  Serious: Yes (Death, Hospitalization, Other)
  Sender: FDA-Public Use
  Company Number: US-SANDOZ-SDZ2024US003936

PATIENT
  Age: 73 Year
  Sex: Male
  Weight: 74.09 kg

DRUGS (3)
  1. TREPROSTINIL [Suspect]
     Active Substance: TREPROSTINIL
     Indication: Pulmonary arterial hypertension
     Dosage: 119 NG/KG/MIN
     Route: 042
     Dates: start: 20190610
  2. TREPROSTINIL [Suspect]
     Active Substance: TREPROSTINIL
     Dosage: 121 NG/KG/MIN, CONT
     Route: 042
     Dates: start: 20191006
  3. OPSUMIT [Concomitant]
     Active Substance: MACITENTAN
     Indication: Product used for unknown indication
     Dosage: UNK
     Route: 065

REACTIONS (3)
  - Death [Fatal]
  - Shock [Unknown]
  - Pneumonia [Unknown]

NARRATIVE: CASE EVENT DATE: 20240307
